FAERS Safety Report 7324488-1 (Version None)
Quarter: 2011Q1

REPORT INFORMATION
  Report Type: 
  Country: None (occurrence: None)
  Receive Date: 20110203
  Receipt Date: 20100715
  Transmission Date: 20110831
  Serious: Yes (Other)
  Sender: FDA-Public Use
  Company Number: 013228

PATIENT
  Sex: Female
  Weight: 61 kg

DRUGS (2)
  1. LEVETIRACETAM [Suspect]
     Indication: PETIT MAL EPILEPSY
     Dosage: (750 MG, 2X750 MG IN AM AND 3X750 MG QHS ORAL)
     Route: 048
     Dates: start: 20080101, end: 20100601
  2. PREDNISOLONE [Concomitant]

REACTIONS (12)
  - SUICIDAL IDEATION [None]
  - CONVULSION [None]
  - DYSPNOEA [None]
  - COORDINATION ABNORMAL [None]
  - ANXIETY [None]
  - DEPRESSION [None]
  - MYALGIA [None]
  - ARTHRALGIA [None]
  - FATIGUE [None]
  - ASTHENIA [None]
  - DECREASED APPETITE [None]
  - ANGER [None]
